FAERS Safety Report 18907012 (Version 1)
Quarter: 2021Q1

REPORT INFORMATION
  Report Type: Spontaneous
  Country: US (occurrence: US)
  Receive Date: 20210217
  Receipt Date: 20210217
  Transmission Date: 20210420
  Serious: Yes (Other)
  Sender: FDA-Public Use
  Company Number: US-NOVEN PHARMACEUTICALS, INC.-2020US009291

PATIENT
  Sex: Female

DRUGS (1)
  1. DAYTRANA [Suspect]
     Active Substance: METHYLPHENIDATE
     Indication: ATTENTION DEFICIT HYPERACTIVITY DISORDER
     Dosage: 20 MG/9 HOURS
     Route: 062
     Dates: start: 201908, end: 20201125

REACTIONS (6)
  - Device issue [Recovered/Resolved]
  - Therapeutic product effect incomplete [Recovered/Resolved]
  - Device breakage [Recovered/Resolved]
  - Product administration error [Recovered/Resolved]
  - Device difficult to use [Recovered/Resolved]
  - Accidental exposure to product [Recovered/Resolved]
